FAERS Safety Report 4534761-8 (Version None)
Quarter: 2004Q4

REPORT INFORMATION
  Report Type: 
  Country: None (occurrence: None)
  Receive Date: 20041214
  Receipt Date: 20041011
  Transmission Date: 20050328
  Serious: No
  Sender: FDA-Public Use
  Company Number: 2004239018US

PATIENT
  Age: 77 Year
  Sex: Female
  Weight: 54.4 kg

DRUGS (7)
  1. BEXTRA [Suspect]
     Indication: RHEUMATOID ARTHRITIS
     Dosage: 10 MG, QD, ORAL
     Route: 048
  2. DEXTROPROPOXYPHENE/PARACETAMOL(DEXTROPROPOXYPHENE) [Concomitant]
  3. CARISOPRODOL [Concomitant]
  4. ATACAND [Concomitant]
  5. PAXIL [Concomitant]
  6. ELAVIL [Concomitant]
  7. INFLUENZA VIRUS VACCINE (INFLUENZA VIRUS VACCINE POLYVALENT) [Concomitant]

REACTIONS (2)
  - JOINT SWELLING [None]
  - OEDEMA PERIPHERAL [None]
